FAERS Safety Report 23780126 (Version 1)
Quarter: 2024Q2

REPORT INFORMATION
  Report Type: Spontaneous
  Country: CA (occurrence: CA)
  Receive Date: 20240424
  Receipt Date: 20240424
  Transmission Date: 20240716
  Serious: Yes (Life-Threatening, Hospitalization, Other)
  Sender: FDA-Public Use
  Company Number: CA-BRACCO-2024CA02224

PATIENT
  Age: 70 Year
  Sex: Male

DRUGS (3)
  1. SULFUR HEXAFLUORIDE [Suspect]
     Active Substance: SULFUR HEXAFLUORIDE
     Indication: Contrast echocardiogram
     Dosage: 2 ML, SINGLE
  2. SULFUR HEXAFLUORIDE [Suspect]
     Active Substance: SULFUR HEXAFLUORIDE
     Indication: Contrast echocardiogram
     Dosage: 2 ML, SINGLE
  3. SULFUR HEXAFLUORIDE [Suspect]
     Active Substance: SULFUR HEXAFLUORIDE
     Indication: Contrast echocardiogram
     Dosage: 2 ML, SINGLE

REACTIONS (12)
  - Acute kidney injury [Recovering/Resolving]
  - Endotracheal intubation [Recovering/Resolving]
  - Erythema [Recovering/Resolving]
  - Hypertension [Recovering/Resolving]
  - Pruritus [Recovering/Resolving]
  - Pulse absent [Recovering/Resolving]
  - Resuscitation [Recovering/Resolving]
  - Seizure [Recovering/Resolving]
  - Torsade de pointes [Recovering/Resolving]
  - Unresponsive to stimuli [Recovering/Resolving]
  - Ventricular arrhythmia [Recovering/Resolving]
  - Ventricular fibrillation [Recovering/Resolving]
